FAERS Safety Report 4834721-3 (Version None)
Quarter: 2005Q4

REPORT INFORMATION
  Report Type: 
  Country: None (occurrence: None)
  Receive Date: 20051122
  Receipt Date: 20050713
  Transmission Date: 20060501
  Serious: No
  Sender: FDA-Public Use
  Company Number: US-BRISTOL-MYERS SQUIBB COMPANY-13036355

PATIENT
  Age: 45 Year
  Sex: Male
  Weight: 118 kg

DRUGS (6)
  1. PRAVACHOL [Suspect]
     Indication: HYPERLIPIDAEMIA
     Route: 048
     Dates: end: 20050711
  2. ADVAIR DISKUS 100/50 [Concomitant]
  3. CLARINEX [Concomitant]
  4. THEOPHYLLINE [Concomitant]
  5. SINGULAIR [Concomitant]
  6. VENTOLIN [Concomitant]

REACTIONS (4)
  - ANOSMIA [None]
  - HYPOAESTHESIA [None]
  - LIBIDO DECREASED [None]
  - MUSCLE SPASMS [None]
